FAERS Safety Report 5581146-1 (Version None)
Quarter: 2007Q4

REPORT INFORMATION
  Report Type: 
  Country: None (occurrence: None)
  Receive Date: 20071227
  Receipt Date: 20071217
  Transmission Date: 20080405
  Serious: Yes (Death)
  Sender: FDA-Public Use
  Company Number: DSJ-2007-10701

PATIENT
  Age: 79 Year
  Sex: Male

DRUGS (8)
  1. OLMESARTAN MEDOXOMIL [Suspect]
     Indication: HYPERTENSION
     Dosage: 20 MG (20 MG, 1 IN 1 D), PER ORAL
     Route: 048
     Dates: start: 20070501, end: 20071009
  2. CASODEX [Suspect]
     Indication: PROSTATE CANCER
     Dosage: 80 MG (80 MG, 1 IN 1 D), PER ORAL
     Route: 048
     Dates: start: 20030101, end: 20071009
  3. CASODEX [Suspect]
     Indication: PROSTATE CANCER
     Dosage: 80 MG (80 MG, 1 IN 1 D), PER ORAL
     Route: 048
     Dates: start: 20070501, end: 20071009
  4. TENORMIN [Suspect]
     Indication: HYPERTENSION
     Dosage: 25 MG (25 MG, 1 IN 1 D), PER ORAL
     Route: 048
     Dates: start: 19970101, end: 20071009
  5. SUNRYTHM (PILSICAINIDE HYDROCHLORIDE) (CAPSULE)  (PILSICAINIDE HYDROCH [Suspect]
     Indication: ATRIAL FIBRILLATION
     Dosage: 50 MG (2 IN 1 D), PER ORAL
     Route: 048
     Dates: start: 20030101, end: 20071009
  6. GASTER D (FAMOTIDINE (TABLET) (FAMOTIDINE) [Suspect]
     Indication: GASTRIC ULCER
     Dosage: 10 MG ( 2 IN 1 D), PER ORAL
     Route: 048
     Dates: end: 20071009
  7. DEPAS (ETIZOLAM ) (TABLET) (ETIZOLAM) [Suspect]
     Indication: INSOMNIA
     Dosage: 0.5 MG (0.5 MG, 1 IN 1 D), PER ORAL
     Route: 048
     Dates: end: 20071009
  8. WARFARIN (WARFARIN) (TABLET) (WARFARIN) [Concomitant]

REACTIONS (20)
  - BRONCHIECTASIS [None]
  - CARDIAC PACEMAKER INSERTION [None]
  - CHEST PAIN [None]
  - CONDITION AGGRAVATED [None]
  - DRUG EFFECT DECREASED [None]
  - GLUCOSE TOLERANCE IMPAIRED [None]
  - GOODPASTURE'S SYNDROME [None]
  - HAEMATURIA [None]
  - INTERSTITIAL LUNG DISEASE [None]
  - LUNG DISORDER [None]
  - MICROSCOPIC POLYANGIITIS [None]
  - NO THERAPEUTIC RESPONSE [None]
  - PNEUMONIA VIRAL [None]
  - PULMONARY ALVEOLAR HAEMORRHAGE [None]
  - PULMONARY FIBROSIS [None]
  - RENAL ATROPHY [None]
  - RENAL FAILURE CHRONIC [None]
  - RENAL IMPAIRMENT [None]
  - RESPIRATORY FAILURE [None]
  - SPLENOMEGALY [None]
